FAERS Safety Report 25915859 (Version 2)
Quarter: 2025Q4

REPORT INFORMATION
  Report Type: Spontaneous
  Country: US (occurrence: US)
  Receive Date: 20251013
  Receipt Date: 20251016
  Transmission Date: 20260117
  Serious: Yes (Other)
  Sender: MISSION PHARMACAL COMPANY
  Company Number: US-Mission Pharmacal Company-2186507

PATIENT
  Age: 81 Year
  Sex: Male

DRUGS (16)
  1. THIOLA EC [Suspect]
     Active Substance: TIOPRONIN
     Indication: Cystinuria
     Dates: start: 20250504
  2. POTASSIUM CITRATE [Concomitant]
     Active Substance: POTASSIUM CITRATE
  3. ZINC [Concomitant]
     Active Substance: ZINC
  4. VITAMIN D [Concomitant]
     Active Substance: VITAMIN D NOS
  5. TIMOLOL [Concomitant]
     Active Substance: TIMOLOL
  6. TAMSULOSIN [Concomitant]
     Active Substance: TAMSULOSIN
  7. PRILOSEC [Concomitant]
     Active Substance: OMEPRAZOLE MAGNESIUM
  8. PLAVIX [Concomitant]
     Active Substance: CLOPIDOGREL BISULFATE
  9. LUTEIN [Concomitant]
     Active Substance: LUTEIN
  10. HYDROCHLOROTHIAZIDE\LISINOPRIL [Concomitant]
     Active Substance: HYDROCHLOROTHIAZIDE\LISINOPRIL
  11. LEVOTHYROXINE [Concomitant]
     Active Substance: LEVOTHYROXINE
  12. GLUCOSAMINE [Concomitant]
     Active Substance: GLUCOSAMINE
  13. COENZYME Q10 [Concomitant]
     Active Substance: DIETARY SUPPLEMENT\UBIDECARENONE
  14. ATORVASTATIN [Concomitant]
     Active Substance: ATORVASTATIN
  15. ASPIRIN [Concomitant]
     Active Substance: ASPIRIN
  16. AMLODIPINE [Concomitant]
     Active Substance: AMLODIPINE BESYLATE

REACTIONS (11)
  - Confusional state [Unknown]
  - Trismus [Unknown]
  - Dysarthria [Unknown]
  - Malaise [Unknown]
  - Transient ischaemic attack [Unknown]
  - Paraesthesia [Unknown]
  - Fatigue [Unknown]
  - Asthenia [Unknown]
  - Hypertension [Unknown]
  - Heart rate increased [Unknown]
  - Hypoaesthesia [Unknown]

NARRATIVE: CASE EVENT DATE: 20251004
